FAERS Safety Report 13849189 (Version 1)
Quarter: 2017Q3

REPORT INFORMATION
  Report Type: Spontaneous
  Country: US (occurrence: US)
  Receive Date: 20170809
  Receipt Date: 20170809
  Transmission Date: 20171127
  Serious: Yes (Other)
  Sender: FDA-Public Use
  Company Number: None

PATIENT
  Age: 75 Year
  Sex: Female
  Weight: 59.93 kg

DRUGS (7)
  1. ALENDRONATE 70 MG [Suspect]
     Active Substance: ALENDRONATE SODIUM
     Indication: BONE DENSITY DECREASED
     Dosage: ?          QUANTITY:/ AIMS;?
     Route: 048
     Dates: start: 20170101, end: 20170717
  2. ALENDRONATE 70 MG [Suspect]
     Active Substance: ALENDRONATE SODIUM
     Indication: OSTEOPOROSIS
     Dosage: ?          QUANTITY:/ AIMS;?
     Route: 048
     Dates: start: 20170101, end: 20170717
  3. LEVOTHYROXINE. [Concomitant]
     Active Substance: LEVOTHYROXINE
  4. MULTIVITAMIN [Concomitant]
     Active Substance: VITAMINS
  5. ASPIRIN. [Concomitant]
     Active Substance: ASPIRIN
  6. CALCIUM [Concomitant]
     Active Substance: CALCIUM
  7. FISH OIL [Concomitant]
     Active Substance: FISH OIL

REACTIONS (1)
  - Tooth fracture [None]

NARRATIVE: CASE EVENT DATE: 201707
